FAERS Safety Report 20229781 (Version 1)
Quarter: 2021Q4

REPORT INFORMATION
  Report Type: Spontaneous
  Country: US (occurrence: US)
  Receive Date: 20211226
  Receipt Date: 20211226
  Transmission Date: 20220303
  Serious: No
  Sender: FDA-Public Use
  Company Number: US-ABBVIE-21K-163-4095170-00

PATIENT
  Sex: Female
  Weight: 72.640 kg

DRUGS (6)
  1. SKYRIZI [Suspect]
     Active Substance: RISANKIZUMAB-RZAA
     Indication: Psoriasis
     Route: 058
     Dates: start: 202107
  2. ATORVASTATIN [Concomitant]
     Active Substance: ATORVASTATIN
     Indication: Blood cholesterol
  3. COENZYME Q10 [Concomitant]
     Active Substance: DIETARY SUPPLEMENT\UBIDECARENONE
     Indication: Nutritional supplementation
  4. CALCIUM [Concomitant]
     Active Substance: CALCIUM
     Indication: Mineral supplementation
  5. VITAMIN D [Concomitant]
     Active Substance: VITAMIN D NOS
     Indication: Vitamin supplementation
  6. FOLIC ACID [Concomitant]
     Active Substance: FOLIC ACID
     Indication: Vitamin supplementation

REACTIONS (2)
  - Fatigue [Recovering/Resolving]
  - Headache [Not Recovered/Not Resolved]

NARRATIVE: CASE EVENT DATE: 20210101
